FAERS Safety Report 13552711 (Version 3)
Quarter: 2019Q3

REPORT INFORMATION
  Report Type: Report from Study
  Country: US (occurrence: US)
  Receive Date: 20170517
  Receipt Date: 20190822
  Transmission Date: 20191004
  Serious: Yes (Death, Hospitalization, Other)
  Sender: FDA-Public Use
  Company Number: US-ROCHE-1935229

PATIENT
  Age: 22 Year
  Sex: Female

DRUGS (3)
  1. ALTEPLASE. [Suspect]
     Active Substance: ALTEPLASE
     Indication: CEREBRAL VENOUS THROMBOSIS
     Route: 013
  2. ARGATROBAN. [Concomitant]
     Active Substance: ARGATROBAN
  3. HEPARIN [Concomitant]
     Active Substance: HEPARIN SODIUM

REACTIONS (4)
  - Basal ganglia stroke [Unknown]
  - Infection [Fatal]
  - Haemorrhagic transformation stroke [Unknown]
  - Therapy partial responder [Unknown]
